FAERS Safety Report 14466201 (Version 2)
Quarter: 2018Q2

REPORT INFORMATION
  Report Type: Spontaneous
  Country: US (occurrence: US)
  Receive Date: 20180131
  Receipt Date: 20180517
  Transmission Date: 20180711
  Serious: Yes (Other)
  Sender: FDA-Public Use
  Company Number: US-009507513-1801USA014532

PATIENT
  Age: 8 Year
  Sex: Female

DRUGS (4)
  1. ZOLINZA [Suspect]
     Active Substance: VORINOSTAT
     Dosage: INCREASED TO 300 MG/DAY, 3 DAYS/WEEK
     Route: 048
  2. ZOLINZA [Suspect]
     Active Substance: VORINOSTAT
     Dosage: 200 MG/DAY, 4 DAYS/WEEK
     Route: 048
  3. ZOLINZA [Suspect]
     Active Substance: VORINOSTAT
     Indication: EMBRYONAL RHABDOMYOSARCOMA
     Dosage: 28 DAY CYCLES AT 200 MG/DAY, UNK
     Route: 048
     Dates: start: 201408
  4. ZOLINZA [Suspect]
     Active Substance: VORINOSTAT
     Dosage: 200 MG, UNK
     Route: 048
     Dates: end: 201502

REACTIONS (3)
  - Pharyngeal haemorrhage [Unknown]
  - Off label use [Unknown]
  - Thrombocytopenia [Unknown]
